FAERS Safety Report 18420501 (Version 1)
Quarter: 2020Q4

REPORT INFORMATION
  Report Type: Spontaneous
  Country: FR (occurrence: FR)
  Receive Date: 20201023
  Receipt Date: 20201023
  Transmission Date: 20210114
  Serious: Yes (Hospitalization)
  Sender: FDA-Public Use
  Company Number: FR-MYLANLABS-2020M1088897

PATIENT
  Age: 74 Year
  Sex: Female
  Weight: 65 kg

DRUGS (8)
  1. CODEINE [Suspect]
     Active Substance: CODEINE
     Indication: SKIN ULCER
     Dosage: UNK
     Route: 048
  2. IBUPROFENE [Concomitant]
     Active Substance: IBUPROFEN
     Dosage: UNK
  3. PARACETAMOL [Concomitant]
     Active Substance: ACETAMINOPHEN
     Indication: SKIN ULCER
     Dosage: UNK
     Route: 048
  4. TRAMADOL. [Suspect]
     Active Substance: TRAMADOL
     Indication: SKIN ULCER
     Dosage: UNK
     Route: 048
     Dates: start: 202003
  5. PRAVASTATINE                       /00880401/ [Concomitant]
     Active Substance: PRAVASTATIN
     Dosage: UNK
  6. PLAVIX [Concomitant]
     Active Substance: CLOPIDOGREL BISULFATE
     Dosage: UNK
  7. APROVEL [Concomitant]
     Active Substance: IRBESARTAN
     Dosage: UNK
  8. METFORMINE                         /00082701/ [Concomitant]
     Active Substance: METFORMIN HYDROCHLORIDE
     Dosage: UNK

REACTIONS (1)
  - Disturbance in attention [Recovered/Resolved]

NARRATIVE: CASE EVENT DATE: 202003
